FAERS Safety Report 10235421 (Version 1)
Quarter: 2014Q2

REPORT INFORMATION
  Report Type: Spontaneous
  Country: US (occurrence: US)
  Receive Date: 20140613
  Receipt Date: 20140613
  Transmission Date: 20141212
  Serious: Yes (Death, Hospitalization)
  Sender: FDA-Public Use
  Company Number: US-GLENMARK GENERICS INC.-2014GMK009783

PATIENT
  Age: 19 Year
  Sex: Male

DRUGS (1)
  1. METFORMIN HCL [Suspect]
     Indication: PRODUCT USED FOR UNKNOWN INDICATION
     Dosage: 240 DF, SINGLE
     Route: 048

REACTIONS (6)
  - Leukaemoid reaction [Fatal]
  - White blood cell count increased [Fatal]
  - Bandaemia [Fatal]
  - Retching [Fatal]
  - Overdose [Fatal]
  - Blood lactic acid increased [Fatal]
